FAERS Safety Report 10322535 (Version 2)
Quarter: 2015Q1

REPORT INFORMATION
  Report Type: Other
  Country: US (occurrence: US)
  Receive Date: 20140720
  Receipt Date: 20150203
  Transmission Date: 20150720
  Serious: Yes (Hospitalization)
  Sender: FDA-Public Use
  Company Number: US-GSKPPD-2014GSK023908

PATIENT
  Age: 58 Year
  Sex: Male

DRUGS (3)
  1. LISINOPRIL. [Concomitant]
     Active Substance: LISINOPRIL
     Route: 048
  2. AVANDAMET [Suspect]
     Active Substance: METFORMIN HYDROCHLORIDE\ROSIGLITAZONE MALEATE
     Indication: DIABETES MELLITUS
     Dosage: 4 MG PER 1000 MG?AVANDIA WAS NOT LISTED AMONG THE PATIENTS RECORDS REVIEWED.
  3. AVANDIA [Suspect]
     Active Substance: ROSIGLITAZONE MALEATE
     Indication: DIABETES MELLITUS
     Dosage: AVANDIA WAS NOT LISTED AMONG THE PATIENTS RECORDS REVIEWED.
     Route: 048

REACTIONS (1)
  - Coronary artery disease [Recovered/Resolved]

NARRATIVE: CASE EVENT DATE: 20031021
